FAERS Safety Report 18266311 (Version 2)
Quarter: 2021Q2

REPORT INFORMATION
  Report Type: Other
  Country: CA (occurrence: CA)
  Receive Date: 20200915
  Receipt Date: 20210512
  Transmission Date: 20210717
  Serious: Yes (Death, Hospitalization, Other)
  Sender: FDA-Public Use
  Company Number: CA-APOTEX-2020AP017555

PATIENT
  Age: 71 Year
  Sex: Male

DRUGS (7)
  1. SANDOSTATIN LAR DEPOT [Suspect]
     Active Substance: OCTREOTIDE ACETATE
     Dosage: 30 MILLIGRAM, Q.M.T.
     Route: 030
  2. APO?METOPROLOL [Concomitant]
     Active Substance: METOPROLOL
     Indication: PRODUCT USED FOR UNKNOWN INDICATION
     Dosage: 25 MILLIGRAM, BID
     Route: 048
  3. SANDOSTATIN LAR DEPOT [Suspect]
     Active Substance: OCTREOTIDE ACETATE
     Indication: CARCINOID TUMOUR
     Dosage: 30 MILLIGRAM
     Route: 030
  4. PANTOPRAZOLE [Suspect]
     Active Substance: PANTOPRAZOLE
     Indication: PRODUCT USED FOR UNKNOWN INDICATION
     Dosage: UNK
     Route: 048
  5. RAMIPRIL. [Suspect]
     Active Substance: RAMIPRIL
     Indication: PRODUCT USED FOR UNKNOWN INDICATION
     Dosage: UNK
     Route: 048
  6. ALLOPURINOL SODIUM. [Concomitant]
     Active Substance: ALLOPURINOL SODIUM
     Indication: GOUT
     Dosage: UNK
     Route: 048
  7. TIAZAC [Concomitant]
     Active Substance: DILTIAZEM HYDROCHLORIDE
     Indication: PRODUCT USED FOR UNKNOWN INDICATION
     Dosage: UNK
     Route: 048

REACTIONS (13)
  - Pain [Unknown]
  - Injection site swelling [Unknown]
  - Constipation [Unknown]
  - Inappropriate schedule of product administration [Unknown]
  - Body temperature decreased [Unknown]
  - Death [Fatal]
  - Injection site haemorrhage [Unknown]
  - Diarrhoea [Unknown]
  - Injection site mass [Unknown]
  - Injection site reaction [Unknown]
  - Blood pressure systolic increased [Unknown]
  - Abdominal discomfort [Unknown]
  - Malaise [Unknown]
